FAERS Safety Report 7292589-2 (Version None)
Quarter: 2011Q1

REPORT INFORMATION
  Report Type: 
  Country: None (occurrence: None)
  Receive Date: 20110215
  Receipt Date: 20110209
  Transmission Date: 20110831
  Serious: No
  Sender: FDA-Public Use
  Company Number: US-JNJFOC-20110203091

PATIENT
  Sex: Female
  Weight: 83.01 kg

DRUGS (2)
  1. DURAGESIC-50 [Suspect]
     Indication: CYSTITIS INTERSTITIAL
     Route: 062
  2. HYDROCODONE [Concomitant]
     Indication: PAIN
     Dosage: 7.5/500 4 TIMES PER DAY
     Route: 048

REACTIONS (2)
  - CHILLS [None]
  - DRUG PRESCRIBING ERROR [None]
